FAERS Safety Report 9656319 (Version 3)
Quarter: 2014Q1

REPORT INFORMATION
  Report Type: Spontaneous
  Country: US (occurrence: US)
  Receive Date: 20131030
  Receipt Date: 20140218
  Transmission Date: 20141002
  Serious: No
  Sender: FDA-Public Use
  Company Number: US-PFIZER INC-2013309147

PATIENT
  Age: 46 Year
  Sex: Female
  Weight: 81.63 kg

DRUGS (2)
  1. LYRICA [Suspect]
     Indication: FIBROMYALGIA
     Dosage: 75 MG, 2X/DAY
     Route: 048
     Dates: end: 20131025
  2. EFEXOR XR [Concomitant]
     Indication: DEPRESSION
     Dosage: UNK

REACTIONS (5)
  - Weight increased [Unknown]
  - Drug withdrawal syndrome [Unknown]
  - Irritability [Unknown]
  - Pain [Unknown]
  - Activities of daily living impaired [Unknown]
